FAERS Safety Report 20072665 (Version 1)
Quarter: 2021Q4

REPORT INFORMATION
  Report Type: Spontaneous
  Country: US (occurrence: US)
  Receive Date: 20211116
  Receipt Date: 20211116
  Transmission Date: 20220303
  Serious: No
  Sender: FDA-Public Use
  Company Number: US-009507513-2111USA000733

PATIENT
  Age: 11 Month

DRUGS (1)
  1. ZOLINZA [Suspect]
     Active Substance: VORINOSTAT
     Indication: Leukaemia
     Dosage: 110 MG ONCE DAILY 4 DAYS PER WEEK
     Route: 048

REACTIONS (1)
  - Off label use [Unknown]
